FAERS Safety Report 8888941 (Version 1)
Quarter: 2012Q4

REPORT INFORMATION
  Report Type: 
  Country: DE (occurrence: DE)
  Receive Date: 20121106
  Receipt Date: 20121106
  Transmission Date: 20130627
  Serious: Yes (Hospitalization)
  Sender: FDA-Public Use
  Company Number: DE-MYLANLABS-2012S1022255

PATIENT
  Age: 25 Year
  Sex: Female
  Weight: 54 kg

DRUGS (1)
  1. CIPROFLOXACIN [Suspect]
     Indication: PROPHYLAXIS
     Dosage: 1-0-1-0
     Route: 048
     Dates: start: 20030731, end: 20030804

REACTIONS (3)
  - Polyarthritis [Unknown]
  - Enterocolitis [Unknown]
  - Diarrhoea [Recovered/Resolved]
